FAERS Safety Report 16683424 (Version 1)
Quarter: 2019Q3

REPORT INFORMATION
  Report Type: Report from Study
  Country: US (occurrence: US)
  Receive Date: 20190808
  Receipt Date: 20190808
  Transmission Date: 20191004
  Serious: Yes (Other)
  Sender: FDA-Public Use
  Company Number: US-UCBSA-2019027532

PATIENT
  Age: 86 Year
  Sex: Female
  Weight: 145 kg

DRUGS (2)
  1. ROTIGOTINE [Suspect]
     Active Substance: ROTIGOTINE
     Indication: RESTLESS LEGS SYNDROME
     Dosage: 8 MILLIGRAM, ONCE DAILY (QD)
     Route: 062
     Dates: end: 20190722
  2. ROTIGOTINE [Suspect]
     Active Substance: ROTIGOTINE
     Indication: PARKINSON^S DISEASE

REACTIONS (5)
  - Systemic lupus erythematosus [Recovered/Resolved]
  - Application site irritation [Recovered/Resolved]
  - Off label use [Recovered/Resolved]
  - Application site pruritus [Recovered/Resolved]
  - Overdose [Unknown]

NARRATIVE: CASE EVENT DATE: 20190401
